FAERS Safety Report 7582758-6 (Version None)
Quarter: 2011Q2

REPORT INFORMATION
  Report Type: 
  Country: None (occurrence: None)
  Receive Date: 20110630
  Receipt Date: 20110627
  Transmission Date: 20111010
  Serious: Yes (Other)
  Sender: FDA-Public Use
  Company Number: FR-PFIZER INC-2011142378

PATIENT
  Age: 64 Year
  Sex: Male

DRUGS (1)
  1. ATORVASTATIN CALCIUM [Suspect]
     Dosage: UNK

REACTIONS (3)
  - MUSCULAR WEAKNESS [None]
  - MYALGIA [None]
  - MUSCULOSKELETAL DISORDER [None]
